FAERS Safety Report 16241028 (Version 6)
Quarter: 2020Q2

REPORT INFORMATION
  Report Type: Report from Study
  Country: TW (occurrence: TW)
  Receive Date: 20190425
  Receipt Date: 20200424
  Transmission Date: 20200713
  Serious: Yes (Life-Threatening, Hospitalization)
  Sender: FDA-Public Use
  Company Number: PHHY2018TW069733

PATIENT
  Age: 70 Year
  Sex: Male
  Weight: 85.3 kg

DRUGS (84)
  1. DUROGESIC [Concomitant]
     Active Substance: FENTANYL
     Indication: PAIN
     Dosage: 12.5 OT, UNK
     Route: 062
     Dates: start: 20180328, end: 20180415
  2. MORPHINE SULFATE. [Concomitant]
     Active Substance: MORPHINE SULFATE
     Dosage: 5 OT, UNK
     Route: 048
     Dates: start: 20180515
  3. QUETIAPINE FUMARATE. [Concomitant]
     Active Substance: QUETIAPINE FUMARATE
     Dosage: 25 OT, UNK
     Route: 042
     Dates: start: 20180417, end: 20180429
  4. FUROSEMIDE. [Concomitant]
     Active Substance: FUROSEMIDE
     Dosage: 20 OT, UNK
     Route: 042
     Dates: start: 20180417, end: 20180417
  5. FUROSEMIDE. [Concomitant]
     Active Substance: FUROSEMIDE
     Dosage: 40 OT, UNK
     Route: 048
     Dates: start: 20180418
  6. FUROSEMIDE. [Concomitant]
     Active Substance: FUROSEMIDE
     Dosage: 20 OT, UNK
     Route: 042
     Dates: start: 20180420, end: 20180421
  7. ALPRAZOLAM. [Concomitant]
     Active Substance: ALPRAZOLAM
     Indication: PROPHYLAXIS
     Dosage: 0.5 OT, UNK
     Route: 048
     Dates: start: 20180417, end: 20180428
  8. ALPRAZOLAM. [Concomitant]
     Active Substance: ALPRAZOLAM
     Dosage: 0.5 OT, UNK
     Route: 048
     Dates: start: 20180429
  9. AMLODIPINE BESYLATE. [Concomitant]
     Active Substance: AMLODIPINE BESYLATE
     Dosage: 200 OT, UNK
     Route: 048
     Dates: start: 20180426, end: 20180508
  10. BISOPROLOL FUMARATE. [Concomitant]
     Active Substance: BISOPROLOL FUMARATE
     Indication: HYPERTENSION
     Dosage: 1.25 OT, UNK
     Route: 048
     Dates: start: 20180506, end: 20180507
  11. AMIODARON [Concomitant]
     Active Substance: AMIODARONE
     Dosage: 200 OT, UNKNOWN
     Route: 048
     Dates: start: 20180519, end: 20180523
  12. MORPHINE HCL [Concomitant]
     Active Substance: MORPHINE HYDROCHLORIDE
     Indication: PAIN MANAGEMENT
     Dosage: 5 OT
     Route: 048
     Dates: start: 20180517, end: 20180523
  13. VOTRIENT [Suspect]
     Active Substance: PAZOPANIB HYDROCHLORIDE
     Dosage: 400 MG, QD
     Route: 065
     Dates: start: 20180417, end: 20180522
  14. MAGNESIUM OXIDE. [Concomitant]
     Active Substance: MAGNESIUM OXIDE
     Indication: PROPHYLAXIS AGAINST GASTROINTESTINAL ULCER
     Dosage: 250 OT, UNK
     Route: 048
     Dates: start: 20180324, end: 20180326
  15. ULTRACET [Concomitant]
     Active Substance: ACETAMINOPHEN\TRAMADOL HYDROCHLORIDE
     Indication: PAIN
     Dosage: 1 OT, UNK
     Route: 048
     Dates: start: 20180321, end: 20180324
  16. MORPHINE SULFATE. [Concomitant]
     Active Substance: MORPHINE SULFATE
     Dosage: 5 OT, UNK
     Route: 048
     Dates: start: 20180329, end: 20180406
  17. LORAZEPAM. [Concomitant]
     Active Substance: LORAZEPAM
     Indication: PROPHYLAXIS
     Dosage: 2 OT, UNK
     Route: 042
     Dates: start: 20180417, end: 20180424
  18. MAGNESIUM SULFATE. [Concomitant]
     Active Substance: MAGNESIUM SULFATE
     Indication: PROPHYLAXIS
     Dosage: 16 OT, UNK
     Route: 042
     Dates: start: 20180506, end: 20180506
  19. FUROSEMIDE. [Concomitant]
     Active Substance: FUROSEMIDE
     Indication: ACUTE KIDNEY INJURY
     Dosage: 20 OT, UNK
     Route: 042
     Dates: start: 20180412, end: 20180414
  20. LEVOFLOXACIN HEMIHYDRATE [Concomitant]
     Active Substance: LEVOFLOXACIN
     Indication: ATYPICAL MYCOBACTERIAL PNEUMONIA
     Dosage: 750 MG
     Route: 042
     Dates: start: 20180321, end: 20180322
  21. FLUMAZENIL. [Concomitant]
     Active Substance: FLUMAZENIL
     Indication: PRODUCT USED FOR UNKNOWN INDICATION
     Dosage: 0.5 OT, UNK
     Route: 042
     Dates: start: 20180320, end: 20180320
  22. SENNAPUR [Concomitant]
     Indication: PROPHYLAXIS
     Dosage: 25 OT, UNK
     Route: 048
     Dates: start: 20180330, end: 20180330
  23. SPIRONOLACTONE. [Concomitant]
     Active Substance: SPIRONOLACTONE
     Indication: ACUTE KIDNEY INJURY
     Dosage: 25 UNK, UNK
     Route: 048
     Dates: start: 20180418, end: 20180420
  24. TAMSULOSIN HCL [Concomitant]
     Active Substance: TAMSULOSIN HYDROCHLORIDE
     Indication: PRODUCT USED FOR UNKNOWN INDICATION
     Dosage: 0.2 OT, UNK
     Route: 048
     Dates: start: 20180503, end: 20180507
  25. ZOPICLONE [Concomitant]
     Active Substance: ZOPICLONE
     Indication: PROPHYLAXIS
     Dosage: 1000 OT, UNK
     Route: 048
     Dates: start: 20180429, end: 20180505
  26. AMLODIPINE BESYLATE. [Concomitant]
     Active Substance: AMLODIPINE BESYLATE
     Indication: HYPERTENSION
     Dosage: 200 OT, UNK
     Route: 048
     Dates: start: 20180519, end: 20180525
  27. AMLODIPINE BESYLATE. [Concomitant]
     Active Substance: AMLODIPINE BESYLATE
     Dosage: 150 OT, UNK
     Route: 042
     Dates: start: 20180506, end: 20180506
  28. BETHANECHOL CHLORIDE. [Concomitant]
     Active Substance: BETHANECHOL CHLORIDE
     Indication: PROPHYLAXIS
     Dosage: 25 OT, UNK
     Route: 048
     Dates: start: 20180513, end: 20180517
  29. CALCITONIN, SALMON [Concomitant]
     Active Substance: CALCITONIN SALMON
     Dosage: 700 OT, UNK
     Route: 058
     Dates: start: 20180426, end: 20180426
  30. CLOPIDOGREL [Concomitant]
     Active Substance: CLOPIDOGREL BISULFATE
     Indication: CORONARY ARTERY DISEASE
     Dosage: 75 OT, UNK
     Route: 048
     Dates: start: 20180506, end: 20180517
  31. LEVOFLOXACIN HEMIHYDRATE [Concomitant]
     Active Substance: LEVOFLOXACIN
     Dosage: 750 MG
     Route: 042
     Dates: start: 20180322, end: 20180327
  32. FEXOFENADINE HCL [Concomitant]
     Active Substance: FEXOFENADINE HYDROCHLORIDE
     Indication: RASH
     Dosage: UNK
     Route: 048
     Dates: start: 20180319, end: 20180323
  33. OXYCONTIN [Concomitant]
     Active Substance: OXYCODONE HYDROCHLORIDE
     Indication: PAIN
     Dosage: 10 OT, UNK
     Route: 048
     Dates: start: 20180329, end: 20180331
  34. NAPROXEN. [Concomitant]
     Active Substance: NAPROXEN
     Indication: PROPHYLAXIS
     Dosage: 250 OT, UNK
     Route: 048
     Dates: start: 20180428, end: 20180429
  35. ZOPICLONE [Concomitant]
     Active Substance: ZOPICLONE
     Dosage: 7.5 OT, UNK
     Route: 042
     Dates: start: 20180517, end: 20180517
  36. FUROSEMIDE. [Concomitant]
     Active Substance: FUROSEMIDE
     Dosage: 20 OT, UNK
     Route: 042
     Dates: start: 20180430, end: 20180430
  37. AMLODIPINE BESYLATE. [Concomitant]
     Active Substance: AMLODIPINE BESYLATE
     Dosage: 200 OT, UNK
     Route: 048
     Dates: start: 20180517, end: 20180517
  38. AMLODIPINE BESYLATE. [Concomitant]
     Active Substance: AMLODIPINE BESYLATE
     Dosage: 5 OT, UNK
     Route: 042
     Dates: start: 20180509, end: 20180513
  39. BISACODYL. [Concomitant]
     Active Substance: BISACODYL
     Indication: PROPHYLAXIS
     Dosage: 20 OT, UNK
     Route: 054
     Dates: start: 20180330, end: 20180501
  40. BISOPROLOL FUMARATE. [Concomitant]
     Active Substance: BISOPROLOL FUMARATE
     Dosage: 5 OT, UNK
     Route: 048
     Dates: start: 20180511, end: 20180517
  41. CALCITONIN, SALMON [Concomitant]
     Active Substance: CALCITONIN SALMON
     Indication: HYPERCALCAEMIA
     Dosage: 350 OT, UNK
     Route: 058
     Dates: start: 20180423, end: 20180425
  42. FEBUXOSTAT. [Concomitant]
     Active Substance: FEBUXOSTAT
     Indication: GOUT
     Dosage: 40 OT
     Route: 048
     Dates: start: 20180311, end: 20180517
  43. VOTRIENT [Suspect]
     Active Substance: PAZOPANIB HYDROCHLORIDE
     Indication: RENAL CELL CARCINOMA
     Dosage: 800 MG, QD
     Route: 048
     Dates: start: 20180331, end: 20180409
  44. NOREPINEPHRINE BITARTRATE. [Concomitant]
     Active Substance: NOREPINEPHRINE BITARTRATE
     Indication: PRODUCT USED FOR UNKNOWN INDICATION
     Dosage: 8 OT, UNK
     Route: 042
     Dates: start: 20180416, end: 20180416
  45. FUROSEMIDE. [Concomitant]
     Active Substance: FUROSEMIDE
     Dosage: 20 OT, UNK
     Route: 042
     Dates: start: 20180517, end: 20180517
  46. ACETAMINOPHEN. [Concomitant]
     Active Substance: ACETAMINOPHEN
     Indication: PROPHYLAXIS
     Dosage: 500 OT, UNK
     Route: 048
     Dates: start: 20180311
  47. AMLODIPINE BESYLATE. [Concomitant]
     Active Substance: AMLODIPINE BESYLATE
     Dosage: 150 OT, UNK
     Route: 042
     Dates: start: 20180418, end: 20180418
  48. BISACODYL. [Concomitant]
     Active Substance: BISACODYL
     Indication: PROPHYLAXIS
     Dosage: 5 OT, UNK
     Route: 048
     Dates: start: 20180407, end: 20180407
  49. CORTISONE ACETATE. [Concomitant]
     Active Substance: CORTISONE ACETATE
     Indication: PROPHYLAXIS
     Dosage: 25 OT, UNK
     Route: 048
     Dates: start: 20180508, end: 20180517
  50. AMIODARON [Concomitant]
     Active Substance: AMIODARONE
     Dosage: 200 OT
     Route: 048
     Dates: start: 20180426, end: 20180508
  51. AMIODARON [Concomitant]
     Active Substance: AMIODARONE
     Dosage: 150 OT
     Route: 048
     Dates: start: 20180506, end: 20180506
  52. AMIODARON [Concomitant]
     Active Substance: AMIODARONE
     Dosage: 200 OT
     Route: 048
     Dates: start: 20180517, end: 20180517
  53. CALCIUM CHLORIDE ANHYDROUS [Concomitant]
     Active Substance: CALCIUM CHLORIDE ANHYDROUS
     Indication: PROPHYLAXIS
     Dosage: 10.8 OT
     Route: 048
     Dates: start: 20180506, end: 20180506
  54. MORPHINE [Concomitant]
     Active Substance: MORPHINE
     Indication: PAIN
     Dosage: 3 OT, UNK
     Route: 042
     Dates: start: 20180329, end: 20180329
  55. MORPHINE [Concomitant]
     Active Substance: MORPHINE
     Dosage: 10 OT, UNK
     Route: 042
     Dates: start: 20180517, end: 20180523
  56. MORPHINE SULFATE. [Concomitant]
     Active Substance: MORPHINE SULFATE
     Indication: PAIN
     Dosage: 3 OT, UNK
     Route: 048
     Dates: start: 20180324
  57. MORPHINE SULFATE. [Concomitant]
     Active Substance: MORPHINE SULFATE
     Dosage: 3 OT, UNK
     Route: 048
     Dates: start: 20180516, end: 20180517
  58. LOPERAMIDE HCL [Concomitant]
     Active Substance: LOPERAMIDE HYDROCHLORIDE
     Indication: PROPHYLAXIS
     Dosage: 2 OT, UNK
     Route: 048
     Dates: start: 20180428, end: 20180503
  59. BISOPROLOL FUMARATE. [Concomitant]
     Active Substance: BISOPROLOL FUMARATE
     Dosage: 2.5 OT, UNK
     Route: 048
     Dates: start: 20180508, end: 20180510
  60. CALCITONIN, SALMON [Concomitant]
     Active Substance: CALCITONIN SALMON
     Dosage: 700 OT, UNK
     Route: 058
     Dates: start: 20180427, end: 20180427
  61. CALCIUM [Concomitant]
     Active Substance: CALCIUM
     Dosage: 10.8 OT, UNK
     Route: 042
     Dates: start: 20180511, end: 20180512
  62. LEVOFLOXACIN HEMIHYDRATE [Concomitant]
     Active Substance: LEVOFLOXACIN
     Dosage: 750 MG
     Route: 042
     Dates: start: 20180329, end: 20180331
  63. CALCIUM CHLORIDE ANHYDROUS [Concomitant]
     Active Substance: CALCIUM CHLORIDE ANHYDROUS
     Dosage: 10.8 OT
     Route: 048
     Dates: start: 20180511, end: 20180512
  64. ADRENALINE [Concomitant]
     Active Substance: EPINEPHRINE
     Indication: DYSPNOEA
     Dosage: 1 OT, UNK
     Route: 055
     Dates: start: 20180322, end: 20180322
  65. MIDAZOLAM HCL [Concomitant]
     Active Substance: MIDAZOLAM HYDROCHLORIDE
     Indication: PRODUCT USED FOR UNKNOWN INDICATION
     Dosage: 2.5 OT, UNK
     Route: 042
     Dates: start: 20180416, end: 20180416
  66. QUETIAPINE FUMARATE. [Concomitant]
     Active Substance: QUETIAPINE FUMARATE
     Indication: PROPHYLAXIS
     Dosage: 25 OT, UNK
     Route: 042
     Dates: start: 20180416, end: 20180416
  67. FUROSEMIDE. [Concomitant]
     Active Substance: FUROSEMIDE
     Dosage: 40 OT, UNK
     Route: 048
     Dates: start: 20180415, end: 20180415
  68. FUROSEMIDE. [Concomitant]
     Active Substance: FUROSEMIDE
     Dosage: 20 OT, UNK
     Route: 042
     Dates: start: 20180424, end: 20180424
  69. ACETAMINOPHEN. [Concomitant]
     Active Substance: ACETAMINOPHEN
     Dosage: 500 OT, UNK
     Route: 048
     Dates: start: 20180501, end: 20180523
  70. ACETYLCYSTEINE. [Concomitant]
     Active Substance: ACETYLCYSTEINE
     Indication: INCREASED VISCOSITY OF UPPER RESPIRATORY SECRETION
     Dosage: 1200 OT, UNK
     Route: 048
     Dates: start: 20180424, end: 20180426
  71. BISACODYL. [Concomitant]
     Active Substance: BISACODYL
     Dosage: 20 OT, UNK
     Route: 054
     Dates: start: 20180510, end: 20180517
  72. AMIODARON [Concomitant]
     Active Substance: AMIODARONE
     Indication: PROPHYLAXIS
     Dosage: 150 OT
     Route: 048
     Dates: start: 20180418, end: 20180418
  73. AMIODARON [Concomitant]
     Active Substance: AMIODARONE
     Dosage: 200 OT
     Route: 048
     Dates: start: 20180508, end: 20180516
  74. AMIODARON [Concomitant]
     Active Substance: AMIODARONE
     Dosage: 200 OT
     Route: 048
     Dates: start: 20180519, end: 20180525
  75. LORAZEPAM. [Concomitant]
     Active Substance: LORAZEPAM
     Dosage: 50 OT, UNK
     Route: 042
  76. SERTACONAZOLE NITRATE [Concomitant]
     Active Substance: SERTACONAZOLE NITRATE
     Indication: PROPHYLAXIS
     Dosage: UNK
     Route: 061
     Dates: start: 20180419, end: 20180504
  77. FUROSEMIDE. [Concomitant]
     Active Substance: FUROSEMIDE
     Dosage: 10 OT, UNK
     Route: 042
     Dates: start: 20180516, end: 20180516
  78. ALPRAZOLAM. [Concomitant]
     Active Substance: ALPRAZOLAM
     Dosage: 0.5 OT, UNK
     Route: 048
     Dates: start: 20180511, end: 20180517
  79. CHLORHEXIDINE GLUCONATE. [Concomitant]
     Active Substance: CHLORHEXIDINE GLUCONATE
     Indication: PROPHYLAXIS
     Route: 065
  80. CALCIUM [Concomitant]
     Active Substance: CALCIUM
     Indication: PRODUCT USED FOR UNKNOWN INDICATION
     Dosage: 10.8 OT, UNK
     Route: 042
     Dates: start: 20180506, end: 20180506
  81. AMIODARON [Concomitant]
     Active Substance: AMIODARONE
     Dosage: 900 OT
     Route: 048
     Dates: start: 20180418, end: 20180418
  82. ANTIBIOTICS-RESISTANT LACTIC ACID BACTERIAE [Concomitant]
     Active Substance: UNSPECIFIED INGREDIENT
     Indication: PROPHYLAXIS
     Dosage: 6 OT
     Route: 048
     Dates: start: 20180428, end: 20180429
  83. CALCIUM POLYSTYRENE SULFONATE [Concomitant]
     Active Substance: CALCIUM POLYSTYRENE SULFONATE
     Indication: PROPHYLAXIS
     Dosage: 15 OT
     Route: 048
     Dates: start: 20180517, end: 20180517
  84. AMAVITA DEXTROMETHORPHAN [Concomitant]
     Indication: COUGH
     Dosage: UNK
     Route: 048
     Dates: start: 20180315, end: 20180419

REACTIONS (4)
  - Respiratory failure [Not Recovered/Not Resolved]
  - Alanine aminotransferase increased [Recovered/Resolved]
  - Pneumonia [Not Recovered/Not Resolved]
  - Aspartate aminotransferase increased [Recovered/Resolved]

NARRATIVE: CASE EVENT DATE: 20180416
